FAERS Safety Report 12209575 (Version 2)
Quarter: 2016Q2

REPORT INFORMATION
  Report Type: Report from Study
  Country: US (occurrence: US)
  Receive Date: 20160324
  Receipt Date: 20160405
  Transmission Date: 20160815
  Serious: Yes (Other)
  Sender: FDA-Public Use
  Company Number: US-AMGEN-USASL2016035559

PATIENT
  Age: 72 Year
  Sex: Female

DRUGS (1)
  1. ENBREL [Suspect]
     Active Substance: ETANERCEPT
     Indication: PSORIATIC ARTHROPATHY
     Dosage: UNK , QWK
     Route: 065
     Dates: start: 20160223

REACTIONS (8)
  - Injection site bruising [Unknown]
  - Skin mass [Not Recovered/Not Resolved]
  - Injection site pain [Unknown]
  - Sjogren^s syndrome [Unknown]
  - Autoimmune disorder [Unknown]
  - Injection site rash [Unknown]
  - Injection site haemorrhage [Recovered/Resolved]
  - Flushing [Not Recovered/Not Resolved]

NARRATIVE: CASE EVENT DATE: 2016
